FAERS Safety Report 7156837-1 (Version None)
Quarter: 2010Q4

REPORT INFORMATION
  Report Type: 
  Country: None (occurrence: None)
  Receive Date: 20101129
  Receipt Date: 20101111
  Transmission Date: 20110411
  Serious: Yes (Other)
  Sender: FDA-Public Use
  Company Number: 2010-3533

PATIENT
  Age: 52 Year
  Sex: Female
  Weight: 78 kg

DRUGS (10)
  1. DYSPORT [Suspect]
     Indication: OFF LABEL USE
     Dosage: 100 UNITS (100 UNITS, SINGLE CYCLE), SUBCUTANEOUS
     Route: 058
     Dates: start: 20100624, end: 20100624
  2. DYSPORT [Suspect]
     Indication: SKIN COSMETIC PROCEDURE
     Dosage: 100 UNITS (100 UNITS, SINGLE CYCLE), SUBCUTANEOUS
     Route: 058
     Dates: start: 20100624, end: 20100624
  3. DYSPORT [Suspect]
     Indication: SKIN WRINKLING
     Dosage: 100 UNITS (100 UNITS, SINGLE CYCLE), SUBCUTANEOUS
     Route: 058
     Dates: start: 20100624, end: 20100624
  4. MULTIVITAMIN [Concomitant]
  5. D3 (COLECALCIFEROL) [Concomitant]
  6. COQ10 (UBIDECARENOONE) [Concomitant]
  7. CALCIUM (CALCIUM) [Concomitant]
  8. BONIVA [Concomitant]
  9. HEATFLEX (ALL OTHER THERAPEUTIC PRODUCTS) [Concomitant]
  10. PROBIOTIC (LACTOBACILLUS REUTERI) [Concomitant]

REACTIONS (7)
  - DYSARTHRIA [None]
  - DYSPHAGIA [None]
  - DYSPNOEA [None]
  - HEADACHE [None]
  - PALPITATIONS [None]
  - THROAT TIGHTNESS [None]
  - WRONG TECHNIQUE IN DRUG USAGE PROCESS [None]
